FAERS Safety Report 5762846-7 (Version None)
Quarter: 2008Q2

REPORT INFORMATION
  Report Type: 
  Country: None (occurrence: None)
  Receive Date: 20080609
  Receipt Date: 20080602
  Transmission Date: 20081010
  Serious: Yes (Disabling)
  Sender: FDA-Public Use
  Company Number: GB-ABBOTT-08P-167-0451502-00

PATIENT
  Age: 47 Year
  Sex: Female

DRUGS (2)
  1. REDUCTIL [Suspect]
     Indication: WEIGHT DECREASED
     Dates: start: 20080222, end: 20080402
  2. ORLISTAT [Concomitant]
     Indication: WEIGHT DECREASED
     Dates: start: 20071228, end: 20080221

REACTIONS (4)
  - ARTHRALGIA [None]
  - JOINT SWELLING [None]
  - MUSCULOSKELETAL DISCOMFORT [None]
  - OEDEMA PERIPHERAL [None]
